FAERS Safety Report 6537625-3 (Version None)
Quarter: 2010Q1

REPORT INFORMATION
  Report Type: 
  Country: None (occurrence: None)
  Receive Date: 20100114
  Receipt Date: 20100111
  Transmission Date: 20100710
  Serious: Yes (Death, Hospitalization)
  Sender: FDA-Public Use
  Company Number: A0839083A

PATIENT
  Age: 64 Year
  Sex: Female

DRUGS (1)
  1. AVANDIA [Suspect]
     Route: 065
     Dates: start: 20050801, end: 20090301

REACTIONS (3)
  - CEREBROVASCULAR ACCIDENT [None]
  - DEHYDRATION [None]
  - RESPIRATORY FAILURE [None]
